FAERS Safety Report 9373231 (Version 1)
Quarter: 2013Q2

REPORT INFORMATION
  Report Type: Report from Study
  Country: US (occurrence: US)
  Receive Date: 20130627
  Receipt Date: 20130627
  Transmission Date: 20140414
  Serious: Yes (Disabling)
  Sender: FDA-Public Use
  Company Number: US-US-EMD SERONO, INC.-7219122

PATIENT
  Sex: Female

DRUGS (4)
  1. REBIF [Suspect]
     Indication: PRODUCT USED FOR UNKNOWN INDICATION
     Route: 058
     Dates: start: 20130509
  2. REBIF [Suspect]
     Route: 058
     Dates: start: 20130612
  3. TYLENOL                            /00020001/ [Concomitant]
     Indication: PREMEDICATION
  4. EPIPEN                             /00003901/ [Concomitant]
     Indication: DRUG HYPERSENSITIVITY

REACTIONS (3)
  - Deafness [Not Recovered/Not Resolved]
  - Oropharyngeal pain [Not Recovered/Not Resolved]
  - Urticaria [Not Recovered/Not Resolved]
